FAERS Safety Report 8030748-1 (Version None)
Quarter: 2012Q1

REPORT INFORMATION
  Report Type: 
  Country: None (occurrence: None)
  Receive Date: 20120109
  Receipt Date: 20120105
  Transmission Date: 20120608
  Serious: Yes (Other)
  Sender: FDA-Public Use
  Company Number: CA-ROCHE-1024398

PATIENT
  Sex: Male
  Weight: 105.33 kg

DRUGS (6)
  1. DECADRON [Concomitant]
     Dates: start: 20111014
  2. DILANTIN [Concomitant]
     Dates: start: 20110624
  3. CLOBAZAM [Concomitant]
     Dates: start: 20111209
  4. AVASTIN [Suspect]
     Indication: GLIOBLASTOMA
     Route: 042
     Dates: start: 20110624, end: 20111209
  5. AVASTIN [Suspect]
     Dates: start: 20111014
  6. AVASTIN [Suspect]
     Dates: start: 20111209

REACTIONS (2)
  - DISEASE PROGRESSION [None]
  - DEEP VEIN THROMBOSIS [None]
